FAERS Safety Report 7217929-1 (Version None)
Quarter: 2011Q1

REPORT INFORMATION
  Report Type: 
  Country: None (occurrence: None)
  Receive Date: 20110110
  Receipt Date: 20101222
  Transmission Date: 20110831
  Serious: Yes (Hospitalization, Congenital Anomaly)
  Sender: FDA-Public Use
  Company Number: A0679412A

PATIENT
  Sex: Male
  Weight: 3 kg

DRUGS (3)
  1. NORVASC [Concomitant]
     Dates: start: 20040101, end: 20070101
  2. PRENATAL VITAMINS [Concomitant]
  3. PAXIL [Suspect]
     Indication: DEPRESSION
     Dosage: 20MG PER DAY
     Route: 048
     Dates: start: 20000814, end: 20050101

REACTIONS (6)
  - DRUG EXPOSURE DURING PREGNANCY [None]
  - AUTISM [None]
  - CARDIAC DISORDER [None]
  - CARDIAC MURMUR [None]
  - MENTAL IMPAIRMENT [None]
  - VENTRICULAR SEPTAL DEFECT [None]
